FAERS Safety Report 15542509 (Version 1)
Quarter: 2018Q4

REPORT INFORMATION
  Report Type: Spontaneous
  Country: US (occurrence: US)
  Receive Date: 20181023
  Receipt Date: 20181023
  Transmission Date: 20190205
  Serious: Yes (Other)
  Sender: FDA-Public Use
  Company Number: US-PFIZER INC-2018427086

PATIENT

DRUGS (1)
  1. LOMOTIL [Suspect]
     Active Substance: ATROPINE SULFATE\DIPHENOXYLATE HYDROCHLORIDE
     Dosage: UNK

REACTIONS (7)
  - Drug ineffective [Unknown]
  - Gastrointestinal disorder [Unknown]
  - Recalled product administered [Unknown]
  - Neoplasm malignant [Unknown]
  - Poor quality product administered [Unknown]
  - Malaise [Unknown]
  - Feeling abnormal [Unknown]
